FAERS Safety Report 4324542-2 (Version None)
Quarter: 2004Q1

REPORT INFORMATION
  Report Type: 
  Country: None (occurrence: None)
  Receive Date: 20040323
  Receipt Date: 20040315
  Transmission Date: 20041129
  Serious: Yes (Other)
  Sender: FDA-Public Use
  Company Number: 2004203719US

PATIENT
  Age: 44 Year
  Sex: Female

DRUGS (2)
  1. DEPO-PROVERA [Suspect]
     Indication: CONTRACEPTION
  2. TYLENOL (CAPLET) [Concomitant]

REACTIONS (2)
  - FOCAL NODULAR HYPERPLASIA [None]
  - HEPATIC ADENOMA [None]
